FAERS Safety Report 11319589 (Version 1)
Quarter: 2015Q3

REPORT INFORMATION
  Report Type: Spontaneous
  Country: US (occurrence: None)
  Receive Date: 20150728
  Receipt Date: 20150728
  Transmission Date: 20151125
  Serious: No
  Sender: FDA-Public Use
  Company Number: None

PATIENT
  Age: 52 Year
  Sex: Male

DRUGS (1)
  1. HUMIRA [Suspect]
     Active Substance: ADALIMUMAB
     Indication: PSORIASIS
     Dosage: FREQUENCY: 40MG  EVERY OTHER WEEK  DOSE FORM: INJECTABLE?DATES OF USE:  MID FEBRUARY-MARCH TO JULY 22, 2015
     Route: 058
     Dates: end: 20150722

REACTIONS (2)
  - Psoriasis [None]
  - Disease progression [None]

NARRATIVE: CASE EVENT DATE: 20150714
